FAERS Safety Report 18902053 (Version 1)
Quarter: 2021Q1

REPORT INFORMATION
  Report Type: Spontaneous
  Country: IT (occurrence: IT)
  Receive Date: 20210216
  Receipt Date: 20210216
  Transmission Date: 20210420
  Serious: Yes (Death, Hospitalization)
  Sender: FDA-Public Use
  Company Number: IT-TEVA-2021-IT-1879393

PATIENT
  Age: 42 Year
  Sex: Male

DRUGS (5)
  1. ENTECAVIR. [Suspect]
     Active Substance: ENTECAVIR
     Indication: HEPATITIS B
     Dosage: .5 MILLIGRAM DAILY;
     Route: 065
  2. MYCOPHENOLATE MOFETIL. [Suspect]
     Active Substance: MYCOPHENOLATE MOFETIL
     Indication: DRUG THERAPY
     Dosage: 2000 MILLIGRAM DAILY;
     Route: 065
  3. PEMBROLIZUMAB. [Suspect]
     Active Substance: PEMBROLIZUMAB
     Indication: METASTASIS
  4. PEMBROLIZUMAB. [Suspect]
     Active Substance: PEMBROLIZUMAB
     Indication: THYMOMA
     Route: 065
  5. METHYLPREDNISOLONE. [Concomitant]
     Active Substance: METHYLPREDNISOLONE
     Indication: DRUG THERAPY
     Dosage: 1 MG/KG DAILY; ESCALATED UP TO 2 MG AFTER 24 HOURS
     Route: 042

REACTIONS (10)
  - Drug ineffective [Unknown]
  - Lymphocytosis [Fatal]
  - Off label use [Fatal]
  - Thrombocytopenia [Unknown]
  - Hepatotoxicity [Fatal]
  - Hepatic failure [Fatal]
  - Psychomotor hyperactivity [Unknown]
  - Thyroid function test abnormal [Unknown]
  - Hepatorenal syndrome [Not Recovered/Not Resolved]
  - Multiple organ dysfunction syndrome [Fatal]
